FAERS Safety Report 9667762 (Version 2)
Quarter: 2013Q4

REPORT INFORMATION
  Report Type: Report from Study
  Country: JP (occurrence: JP)
  Receive Date: 20131104
  Receipt Date: 20131104
  Transmission Date: 20140711
  Serious: Yes (Hospitalization, Other)
  Sender: FDA-Public Use
  Company Number: JP-TAKEDA-TCI2013A04591

PATIENT
  Age: 65 Year
  Sex: Male
  Weight: 54 kg

DRUGS (12)
  1. NESINA [Suspect]
     Indication: TYPE 2 DIABETES MELLITUS
     Dosage: 6.25 MG, QD
     Route: 048
     Dates: start: 20120120
  2. BASEN OD [Concomitant]
     Indication: TYPE 2 DIABETES MELLITUS
     Dosage: 0.9 MG, 1 DAYS
     Route: 048
  3. BASEN OD [Concomitant]
     Route: 048
  4. ARTIST [Concomitant]
     Dosage: 20 MG, 1 DAYS
     Route: 048
  5. ARTIST [Concomitant]
     Route: 048
  6. PARIET [Concomitant]
     Dosage: 10 MG, 1 DAYS
     Route: 048
  7. PARIET [Concomitant]
     Route: 048
  8. AVAPRO [Concomitant]
     Indication: HYPERTENSION
     Dosage: 200 MG, 1 DAYS
     Route: 048
  9. AVAPRO [Concomitant]
     Route: 048
  10. PLETAAL OD [Concomitant]
     Dosage: 200 MG, 1 DAYS
     Route: 048
     Dates: end: 20120829
  11. ALOSITOL [Concomitant]
     Dosage: 100 MG, 1 DAYS
     Route: 048
  12. ALOSITOL [Concomitant]
     Route: 048

REACTIONS (2)
  - Cardiac failure [Recovering/Resolving]
  - Atrial fibrillation [Recovering/Resolving]
